FAERS Safety Report 15012373 (Version 1)
Quarter: 2018Q2

REPORT INFORMATION
  Report Type: Spontaneous
  Country: US (occurrence: US)
  Receive Date: 20180522
  Receipt Date: 20180522
  Transmission Date: 20180711
  Serious: No
  Sender: FDA-Public Use
  Company Number: None

PATIENT
  Sex: Female
  Weight: 58.06 kg

DRUGS (1)
  1. TALTZ [Suspect]
     Active Substance: IXEKIZUMAB
     Indication: PSORIATIC ARTHROPATHY
     Dosage: AS DIRECTED SQ
     Route: 058
     Dates: start: 201805

REACTIONS (5)
  - Urticaria [None]
  - Injection site erythema [None]
  - Injection site warmth [None]
  - Injection site pruritus [None]
  - Injection related reaction [None]
